FAERS Safety Report 5728509-9 (Version None)
Quarter: 2008Q2

REPORT INFORMATION
  Report Type: 
  Country: None (occurrence: None)
  Receive Date: 20080502
  Receipt Date: 20080502
  Transmission Date: 20081010
  Serious: Yes (Other)
  Sender: FDA-Public Use
  Company Number: None

PATIENT
  Age: 70 Year
  Sex: Female
  Weight: 59.32 kg

DRUGS (1)
  1. GADOPENTETATE DIMEGLUMINE [Suspect]
     Dosage: ONCE IV
     Route: 042
     Dates: start: 20060620, end: 20060620

REACTIONS (1)
  - NEPHROGENIC SYSTEMIC FIBROSIS [None]
